FAERS Safety Report 24455062 (Version 2)
Quarter: 2024Q4

REPORT INFORMATION
  Report Type: Spontaneous
  Country: VN (occurrence: VN)
  Receive Date: 20241017
  Receipt Date: 20241018
  Transmission Date: 20250114
  Serious: No
  Sender: ROCHE
  Company Number: VN-ROCHE-3475012

PATIENT
  Age: 38 Year
  Sex: Female

DRUGS (14)
  1. RITUXIMAB [Suspect]
     Active Substance: RITUXIMAB
     Indication: Non-Hodgkin^s lymphoma
     Dosage: ON DAY 1
     Route: 042
  2. JANUMET [Concomitant]
     Active Substance: METFORMIN HYDROCHLORIDE\SITAGLIPTIN PHOSPHATE
     Dosage: 50/850
  3. MEDROL [Concomitant]
     Active Substance: METHYLPREDNISOLONE
     Dosage: 1 TABLET/DAY
  4. NEORAL [Concomitant]
     Active Substance: CYCLOSPORINE
     Dosage: 1 TABLET/DAY
  5. CYCLOPHOSPHAMIDE [Concomitant]
     Active Substance: CYCLOPHOSPHAMIDE
     Dosage: ON DAY 1
     Route: 042
  6. CYCLOPHOSPHAMIDE [Concomitant]
     Active Substance: CYCLOPHOSPHAMIDE
     Dosage: CONTINUOUS INTRAVENOUS INFUSION FOR 3 HOURS, EVERY 12 HOURS
     Route: 042
  7. DOXORUBICIN [Concomitant]
     Active Substance: DOXORUBICIN
     Dosage: ON DAY 1
     Route: 042
  8. DOXORUBICIN [Concomitant]
     Active Substance: DOXORUBICIN
     Dosage: SKIN/DAY INTRAVENOUS INFUSION FOR 72 HOURS
  9. VINCRISTINE [Concomitant]
     Active Substance: VINCRISTINE
     Dosage: ON DAY 1
     Route: 042
  10. VINCRISTINE [Concomitant]
     Active Substance: VINCRISTINE
     Dosage: SKIN (MAXIMUM 2MG), INTRAVENOUS INFUSION, INFUSED AT 12 HOURS AFTER CYCLOPHOSPHAMIDE
     Route: 042
  11. PREDNISONE [Concomitant]
     Active Substance: PREDNISONE
     Dosage: ON DAYS 1 TO 5
     Route: 048
  12. DEXAMETHASONE [Concomitant]
     Active Substance: DEXAMETHASONE
     Route: 042
  13. DEXAMETHASONE [Concomitant]
     Active Substance: DEXAMETHASONE
     Route: 048
  14. MESNA [Concomitant]
     Active Substance: MESNA
     Dosage: SKIN/DAY, INTRAVENOUS INFUSION FOR 72 HOURS, STARTING ON DAY 2, AT 1 HOUR BEFORE THE FIRST DOSE AND

REACTIONS (2)
  - Off label use [Unknown]
  - No adverse event [Unknown]
